FAERS Safety Report 6634954-X (Version None)
Quarter: 2010Q1

REPORT INFORMATION
  Report Type: 
  Country: None (occurrence: None)
  Receive Date: 20100315
  Receipt Date: 20100304
  Transmission Date: 20100710
  Serious: Yes (Death, Hospitalization)
  Sender: FDA-Public Use
  Company Number: JP-GILEAD-2009-0024995

PATIENT
  Sex: Female

DRUGS (22)
  1. TRUVADA [Suspect]
     Indication: HIV INFECTION
     Route: 048
     Dates: start: 20060523, end: 20080424
  2. VALGANCICLOVIR HCL [Suspect]
     Indication: CYTOMEGALOVIRUS CHORIORETINITIS
     Route: 048
     Dates: start: 20060303, end: 20070106
  3. ZITHROMAX [Suspect]
     Indication: MYCOBACTERIUM AVIUM COMPLEX INFECTION
     Route: 048
     Dates: start: 20060316, end: 20060508
  4. VIDEX [Suspect]
     Indication: HIV INFECTION
     Route: 048
     Dates: start: 20060328, end: 20060522
  5. ZIAGEN [Suspect]
     Indication: HIV INFECTION
     Route: 048
     Dates: start: 20060328, end: 20060522
  6. NORVIR [Suspect]
     Indication: HIV INFECTION
     Route: 048
     Dates: start: 20060328, end: 20081118
  7. REYATAZ [Suspect]
     Indication: HIV INFECTION
     Dates: start: 20060328, end: 20081118
  8. ESANBUTOL [Suspect]
     Indication: MYCOBACTERIUM AVIUM COMPLEX INFECTION
     Route: 048
     Dates: start: 20060401, end: 20060508
  9. BAKTAR [Suspect]
     Indication: PNEUMOCYSTIS JIROVECI PNEUMONIA
     Route: 048
     Dates: start: 20060509, end: 20070616
  10. RANDA [Suspect]
     Indication: CERVIX CARCINOMA
     Route: 042
     Dates: start: 20080417, end: 20080417
  11. RANDA [Suspect]
     Route: 042
     Dates: start: 20080501, end: 20080501
  12. RANDA [Suspect]
     Route: 042
     Dates: start: 20080508, end: 20080508
  13. RANDA [Suspect]
     Route: 042
     Dates: start: 20080522, end: 20080522
  14. RANDA [Suspect]
     Route: 042
     Dates: start: 20080530, end: 20080530
  15. EPIVIR [Suspect]
     Indication: HIV INFECTION
     Dates: start: 20080425, end: 20081118
  16. ZERIT [Suspect]
     Indication: HIV INFECTION
     Route: 048
     Dates: start: 20080425, end: 20081118
  17. THYRADIN S [Concomitant]
     Dates: start: 20060606, end: 20070421
  18. THYRADIN S [Concomitant]
     Dates: start: 20070422, end: 20081118
  19. ALOSITOL [Concomitant]
     Indication: HIV INFECTION
     Dates: start: 20060401, end: 20081118
  20. GASTER D [Concomitant]
     Dates: start: 20060509, end: 20070831
  21. GASTER D [Concomitant]
     Dates: start: 20070901, end: 20081118
  22. MELVALOTIN [Concomitant]
     Dates: start: 20060515, end: 20081118

REACTIONS (3)
  - CERVIX CARCINOMA [None]
  - METABOLIC ACIDOSIS [None]
  - RENAL IMPAIRMENT [None]
